FAERS Safety Report 13713364 (Version 1)
Quarter: 2017Q3

REPORT INFORMATION
  Report Type: Spontaneous
  Country: FR (occurrence: FR)
  Receive Date: 20170704
  Receipt Date: 20170704
  Transmission Date: 20171127
  Serious: Yes (Hospitalization, Other)
  Sender: FDA-Public Use
  Company Number: FR-ASTRAZENECA-2017SE67866

PATIENT
  Age: 9947 Day
  Sex: Male

DRUGS (1)
  1. XEROQUEL [Suspect]
     Active Substance: QUETIAPINE FUMARATE
     Dosage: 60 TABLETS OF 300 MG AT ONCE
     Route: 048
     Dates: start: 20170613

REACTIONS (6)
  - Suicide attempt [Unknown]
  - Pneumonia aspiration [Recovering/Resolving]
  - Intentional overdose [Unknown]
  - Acute kidney injury [Recovered/Resolved]
  - Urinary retention [Recovered/Resolved]
  - Sedation complication [Recovered/Resolved]

NARRATIVE: CASE EVENT DATE: 20170614
